FAERS Safety Report 19710773 (Version 2)
Quarter: 2021Q3

REPORT INFORMATION
  Report Type: Report from Study
  Country: IN (occurrence: IN)
  Receive Date: 20210816
  Receipt Date: 20210823
  Transmission Date: 20211014
  Serious: Yes (Hospitalization)
  Sender: FDA-Public Use
  Company Number: IN-PFIZER INC-2021861168

PATIENT
  Age: 49 Year
  Sex: Female
  Weight: 73.6 kg

DRUGS (7)
  1. ROSUVEL 10 [Concomitant]
     Indication: HYPERCHOLESTEROLAEMIA
     Dosage: 10 MG, 1X/DAY
     Route: 048
     Dates: start: 20210322
  2. FEBUSTAT [Concomitant]
     Indication: HYPERURICAEMIA
     Dosage: 40 MG, 1X/DAY
     Route: 048
     Dates: start: 20210517, end: 20210717
  3. LORBRENA [Suspect]
     Active Substance: LORLATINIB
     Dosage: 100 MG, 1X/DAY, FIFTH CYCLE 4 TABLETS 25MG DAILY
     Route: 048
     Dates: start: 20210615, end: 20210707
  4. LORBRENA [Suspect]
     Active Substance: LORLATINIB
     Dosage: 100 MG, 1X/DAY, FOURTH CYCLE 4 TABLETS 25MG DAILY
     Route: 048
     Dates: start: 20210517, end: 20210614
  5. LORBRENA [Suspect]
     Active Substance: LORLATINIB
     Dosage: 100 MG, 1X/DAY, SECOND CYCLE 4 TABLETS 25MG DAILY
     Route: 048
     Dates: start: 20210322, end: 20210418
  6. LORBRENA [Suspect]
     Active Substance: LORLATINIB
     Indication: NON-SMALL CELL LUNG CANCER
     Dosage: 100 MG, 1X/DAY, FIRST CYCLE 4 TABLETS 25MG DAILY
     Route: 048
     Dates: start: 20210222, end: 20210321
  7. LORBRENA [Suspect]
     Active Substance: LORLATINIB
     Dosage: 100 MG, 1X/DAY, THIRD CYCLE 4 TABLETS 25MG DAILY
     Route: 048
     Dates: start: 20210419, end: 20210516

REACTIONS (1)
  - Dyspnoea at rest [Recovered/Resolved]

NARRATIVE: CASE EVENT DATE: 20210707
